FAERS Safety Report 8483382-3 (Version None)
Quarter: 2012Q3

REPORT INFORMATION
  Report Type: 
  Country: None (occurrence: None)
  Receive Date: 20120702
  Receipt Date: 20120626
  Transmission Date: 20120928
  Serious: Yes (Hospitalization)
  Sender: FDA-Public Use
  Company Number: NL-PFIZER INC-2012094782

PATIENT
  Age: 57 Year
  Sex: Female
  Weight: 69 kg

DRUGS (12)
  1. CARVEDILOL [Concomitant]
  2. SPIRIVA [Concomitant]
  3. LANOXIN [Concomitant]
  4. BECLOMETHASONE DIPROPIONATE [Concomitant]
  5. MIRTAZAPINE [Concomitant]
  6. EXEMESTANE [Suspect]
     Indication: BREAST CANCER
     Dosage: 25 MG, 1X/DAY
     Route: 048
     Dates: start: 20100819
  7. INSPRA [Concomitant]
  8. PAROXETINE [Concomitant]
  9. SLOW-K [Concomitant]
  10. PHENPROCOUMON [Concomitant]
  11. PERINDOPRIL [Concomitant]
  12. BUMETANIDE [Concomitant]

REACTIONS (1)
  - PNEUMOCOCCAL BACTERAEMIA [None]
